FAERS Safety Report 4934089-8 (Version None)
Quarter: 2006Q1

REPORT INFORMATION
  Report Type: 
  Country: None (occurrence: None)
  Receive Date: 20060303
  Receipt Date: 20060221
  Transmission Date: 20060701
  Serious: Yes (Other)
  Sender: FDA-Public Use
  Company Number: 2006025899

PATIENT
  Sex: Female

DRUGS (1)
  1. NATURAL CITRUS LISTERINE (MENTHOL, METHYL SALICYLATE, EUCALYPTOL, THYM [Suspect]
     Indication: INJURY
     Dosage: LARGE AMOUNT ONCE, OPHTHALMIC
     Route: 047
     Dates: start: 20060221, end: 20060221

REACTIONS (2)
  - ACCIDENTAL EXPOSURE [None]
  - BLINDNESS UNILATERAL [None]
